FAERS Safety Report 9014475 (Version 3)
Quarter: 2013Q1

REPORT INFORMATION
  Report Type: Report from Study
  Country: DE (occurrence: DE)
  Receive Date: 20130115
  Receipt Date: 20130219
  Transmission Date: 20140127
  Serious: Yes (Other)
  Sender: FDA-Public Use
  Company Number: DE-GLAXOSMITHKLINE-B0856581B

PATIENT
  Sex: Female
  Weight: 94 kg

DRUGS (11)
  1. LAPATINIB [Suspect]
     Indication: BREAST CANCER
     Dosage: 750MG PER DAY
     Route: 048
     Dates: start: 20121205
  2. MYOCET [Suspect]
     Indication: BREAST CANCER
     Dosage: 40MG WEEKLY
     Route: 042
     Dates: start: 20121205
  3. TRASTUZUMAB [Suspect]
     Indication: BREAST CANCER
     Dosage: 588MG EVERY 3 WEEKS
     Route: 042
     Dates: start: 20121205
  4. PACLITAXEL [Suspect]
     Indication: BREAST CANCER
     Dosage: 162MG WEEKLY
     Route: 042
     Dates: start: 20121205
  5. LOPEDIUM [Concomitant]
     Dates: start: 20121205
  6. RAMIPRIL [Concomitant]
  7. SALICYLIC ACID WITH VASELINE [Concomitant]
  8. OMEPRAZOLE [Concomitant]
     Dosage: 20MG PER DAY
     Dates: start: 20121212
  9. PANTHENOL [Concomitant]
     Dates: start: 20130109
  10. MAALOXAN [Concomitant]
     Dates: start: 20130109
  11. XYLOCAINE [Concomitant]
     Dates: start: 20130109

REACTIONS (2)
  - Cutis laxa [Recovered/Resolved]
  - Skin disorder [Recovered/Resolved]
